FAERS Safety Report 4511331-9 (Version None)
Quarter: 2004Q4

REPORT INFORMATION
  Report Type: 
  Country: None (occurrence: None)
  Receive Date: 20041129
  Receipt Date: 20041119
  Transmission Date: 20050328
  Serious: Yes (Life-Threatening)
  Sender: FDA-Public Use
  Company Number: US-JNJFOC-20041105449

PATIENT
  Sex: Male
  Weight: 80.3 kg

DRUGS (7)
  1. NATRECOR [Suspect]
     Route: 042
  2. NATRECOR [Suspect]
     Route: 042
  3. ATROVASTATIN [Concomitant]
     Indication: LIPIDS INCREASED
     Route: 049
  4. FUROSEMIDE [Concomitant]
     Route: 042
  5. LISINOPRIL [Concomitant]
     Route: 049
  6. NITROGLYCERIN [Concomitant]
     Indication: CHEST PAIN
     Route: 060
  7. HEPARIN [Concomitant]
     Route: 042

REACTIONS (4)
  - CARDIAC ARREST [None]
  - SINUS BRADYCARDIA [None]
  - TACHYCARDIA [None]
  - VENTRICULAR FIBRILLATION [None]
